FAERS Safety Report 13470446 (Version 1)
Quarter: 2017Q2

REPORT INFORMATION
  Report Type: Spontaneous
  Country: US (occurrence: US)
  Receive Date: 20170423
  Receipt Date: 20170423
  Transmission Date: 20170830
  Serious: Yes (Other)
  Sender: FDA-Public Use
  Company Number: PHEH2017US011191

PATIENT
  Sex: Female
  Weight: 88.89 kg

DRUGS (3)
  1. IBRANCE [Suspect]
     Active Substance: PALBOCICLIB
     Indication: BREAST CANCER METASTATIC
     Dosage: 75 MG, CAPSULES D 1-21 Q 28 DAYS
     Route: 048
     Dates: start: 20151207, end: 20170321
  2. LETROZOLE. [Suspect]
     Active Substance: LETROZOLE
     Indication: BREAST CANCER METASTATIC
     Dosage: UNK
     Route: 065
  3. IBRANCE [Suspect]
     Active Substance: PALBOCICLIB
     Dosage: 100 MG, CAPSULES D 1-21 Q 28 DAYS
     Route: 048
     Dates: start: 201703

REACTIONS (2)
  - Metastases to bone [Unknown]
  - Fatigue [Unknown]
